FAERS Safety Report 17096459 (Version 2)
Quarter: 2020Q1

REPORT INFORMATION
  Report Type: Spontaneous
  Country: DE (occurrence: DE)
  Receive Date: 20191202
  Receipt Date: 20200116
  Transmission Date: 20200409
  Serious: Yes (Hospitalization, Other)
  Sender: FDA-Public Use
  Company Number: DE-B.I. PHARMACEUTICALS,INC./RIDGEFIELD-2019-BI-116173

PATIENT
  Age: 64 Year
  Sex: Female

DRUGS (2)
  1. GILOTRIF [Suspect]
     Active Substance: AFATINIB
     Route: 065
  2. GILOTRIF [Suspect]
     Active Substance: AFATINIB
     Indication: NON-SMALL CELL LUNG CANCER
     Route: 065

REACTIONS (6)
  - Haemothorax [Recovered/Resolved]
  - Pulmonary embolism [Unknown]
  - Metastases to skin [Unknown]
  - Malignant pleural effusion [Unknown]
  - Malignant pleural effusion [Recovered/Resolved]
  - Metastases to peritoneum [Unknown]
